FAERS Safety Report 6847799-2 (Version None)
Quarter: 2010Q3

REPORT INFORMATION
  Report Type: 
  Country: None (occurrence: None)
  Receive Date: 20100714
  Receipt Date: 20100629
  Transmission Date: 20110219
  Serious: Yes (Other)
  Sender: FDA-Public Use
  Company Number: MC201000175

PATIENT
  Age: 57 Year
  Sex: Female

DRUGS (2)
  1. ANGIOMAX [Suspect]
     Indication: CORONARY ARTERY BYPASS
     Dates: start: 20100601
  2. COUMADIN [Concomitant]

REACTIONS (7)
  - COAGULOPATHY [None]
  - DRUG ADMINISTRATION ERROR [None]
  - DRUG SPECIFIC ANTIBODY PRESENT [None]
  - HAEMORRHAGE [None]
  - OFF LABEL USE [None]
  - POST PROCEDURAL COMPLICATION [None]
  - POST PROCEDURAL HAEMORRHAGE [None]
